FAERS Safety Report 15396782 (Version 1)
Quarter: 2018Q3

REPORT INFORMATION
  Report Type: Report from Study
  Country: MX (occurrence: MX)
  Receive Date: 20180918
  Receipt Date: 20180918
  Transmission Date: 20181010
  Serious: Yes (Other)
  Sender: FDA-Public Use
  Company Number: MX-SAKK-2018SA244095AA

PATIENT
  Sex: Female

DRUGS (5)
  1. AMARYL [Suspect]
     Active Substance: GLIMEPIRIDE
     Dosage: 2 DF, QD
     Route: 048
  2. AMARYL [Suspect]
     Active Substance: GLIMEPIRIDE
     Dosage: 1 DF, QD
     Route: 048
  3. INSULIN GLARGINE [Suspect]
     Active Substance: INSULIN GLARGINE
     Dosage: 30 IU, QD
     Route: 058
  4. AMARYL [Suspect]
     Active Substance: GLIMEPIRIDE
     Dosage: 1 TABLET /24 HOURS
     Route: 048
  5. LANTUS [Suspect]
     Active Substance: INSULIN GLARGINE
     Dosage: UNK
     Route: 058

REACTIONS (5)
  - Visual impairment [Unknown]
  - Amnesia [Unknown]
  - Renal impairment [Unknown]
  - Influenza [Unknown]
  - Cough [Unknown]
